FAERS Safety Report 17135195 (Version 1)
Quarter: 2019Q4

REPORT INFORMATION
  Report Type: Report from Study
  Country: DE (occurrence: DE)
  Receive Date: 20191210
  Receipt Date: 20191210
  Transmission Date: 20200122
  Serious: Yes (Other)
  Sender: FDA-Public Use
  Company Number: PHHY2016DE137013

PATIENT
  Age: 48 Year
  Sex: Female

DRUGS (2)
  1. GILENYA [Suspect]
     Active Substance: FINGOLIMOD HYDROCHLORIDE
     Indication: MULTIPLE SCLEROSIS
     Dosage: UNK, QD
     Route: 048
     Dates: start: 20141104
  2. AMLODIPIN [Concomitant]
     Active Substance: AMLODIPINE BESYLATE
     Indication: HYPERTENSION
     Dosage: UNK
     Route: 065
     Dates: start: 20180302

REACTIONS (20)
  - Muscle contracture [Recovered/Resolved]
  - Mass [Unknown]
  - Intraocular pressure increased [Unknown]
  - Fall [Unknown]
  - Vertigo [Recovered/Resolved]
  - Cervicobrachial syndrome [Unknown]
  - Multiple sclerosis relapse [Unknown]
  - Gamma-glutamyltransferase increased [Unknown]
  - Aspartate aminotransferase increased [Recovering/Resolving]
  - Exostosis [Unknown]
  - Lymphocyte count decreased [Unknown]
  - Hypertension [Recovered/Resolved]
  - Alanine aminotransferase increased [Unknown]
  - Pain [Unknown]
  - Arthralgia [Recovered/Resolved]
  - Muscle spasticity [Unknown]
  - Fatigue [Not Recovered/Not Resolved]
  - Muscle spasms [Unknown]
  - White blood cell count decreased [Recovering/Resolving]
  - Trigeminal neuralgia [Recovered/Resolved]

NARRATIVE: CASE EVENT DATE: 20150126
